FAERS Safety Report 22398444 (Version 3)
Quarter: 2023Q2

REPORT INFORMATION
  Report Type: Spontaneous
  Country: MX (occurrence: MX)
  Receive Date: 20230602
  Receipt Date: 20230607
  Transmission Date: 20230722
  Serious: Yes (Other)
  Sender: FDA-Public Use
  Company Number: MX-JNJFOC-20230564886

PATIENT
  Age: 16 Year
  Sex: Female

DRUGS (1)
  1. RISPERDAL [Suspect]
     Active Substance: RISPERIDONE
     Indication: Product used for unknown indication
     Dosage: AT A DOSE OF 2 MG PER DAY
     Route: 048

REACTIONS (2)
  - Drug abuse [Unknown]
  - Galactorrhoea [Unknown]
